FAERS Safety Report 17453661 (Version 1)
Quarter: 2020Q1

REPORT INFORMATION
  Report Type: Spontaneous
  Country: US (occurrence: US)
  Receive Date: 20200224
  Receipt Date: 20200224
  Transmission Date: 20200409
  Serious: No
  Sender: FDA-Public Use
  Company Number: US-VYERA PHARMACEUTICALS, LLC-2019VYE00048

PATIENT
  Sex: Female

DRUGS (3)
  1. VANCOMYCIN POWDER [Concomitant]
  2. DARAPRIM [Suspect]
     Active Substance: PYRIMETHAMINE
     Indication: IMMUNODEFICIENCY
     Dosage: 37.5 MG, 1X/DAY
     Route: 048
     Dates: start: 20190404, end: 2019
  3. DARAPRIM [Suspect]
     Active Substance: PYRIMETHAMINE
     Dosage: 37.5 MG, 1X/DAY
     Route: 048
     Dates: start: 2019

REACTIONS (2)
  - Abdominal pain upper [Recovering/Resolving]
  - Product use in unapproved indication [Not Recovered/Not Resolved]

NARRATIVE: CASE EVENT DATE: 2019
